FAERS Safety Report 12325035 (Version 2)
Quarter: 2016Q2

REPORT INFORMATION
  Report Type: Report from Study
  Country: CN (occurrence: CN)
  Receive Date: 20160502
  Receipt Date: 20160509
  Transmission Date: 20160815
  Serious: Yes (Other)
  Sender: FDA-Public Use
  Company Number: CN-ELI_LILLY_AND_COMPANY-CN201604007429

PATIENT
  Age: 78 Year
  Sex: Male
  Weight: 65 kg

DRUGS (5)
  1. INSULIN, HUMAN [Suspect]
     Active Substance: INSULIN HUMAN
     Indication: DIABETES MELLITUS
     Dosage: UNK UNK, EACH MORNING
     Route: 058
     Dates: start: 201510
  2. INSULIN, HUMAN [Suspect]
     Active Substance: INSULIN HUMAN
     Dosage: 11 U, EACH EVENING
     Route: 058
     Dates: start: 201510
  3. INSULIN, HUMAN [Suspect]
     Active Substance: INSULIN HUMAN
     Dosage: 10 U, EACH MORNING
     Route: 058
  4. GLUCOBAY [Concomitant]
     Active Substance: ACARBOSE
     Dosage: UNK, UNKNOWN
     Route: 065
  5. INSULIN, HUMAN [Suspect]
     Active Substance: INSULIN HUMAN
     Dosage: 9 U, EACH EVENING
     Route: 058

REACTIONS (5)
  - Incorrect dose administered [Unknown]
  - Hypoglycaemia [Unknown]
  - Hypoglycaemia [Unknown]
  - Depressed level of consciousness [Unknown]
  - Hypoglycaemia [Unknown]

NARRATIVE: CASE EVENT DATE: 201601
